FAERS Safety Report 23124986 (Version 2)
Quarter: 2023Q4

REPORT INFORMATION
  Report Type: Report from Study
  Country: JP (occurrence: JP)
  Receive Date: 20231030
  Receipt Date: 20231107
  Transmission Date: 20240110
  Serious: Yes (Death, Other)
  Sender: FDA-Public Use
  Company Number: JP-UCBJ-CD202309038UCBPHAPROD

PATIENT
  Age: 8 Year
  Sex: Male
  Weight: 14.5 kg

DRUGS (17)
  1. VIMPAT [Suspect]
     Active Substance: LACOSAMIDE
     Indication: Generalised tonic-clonic seizure
     Dosage: 13 MILLIGRAM, 2X/DAY (BID)
     Route: 048
     Dates: start: 20230726, end: 20230728
  2. VIMPAT [Suspect]
     Active Substance: LACOSAMIDE
     Dosage: 20 MILLIGRAM, 2X/DAY (BID)
     Route: 048
     Dates: start: 20230728, end: 20230801
  3. VIMPAT [Suspect]
     Active Substance: LACOSAMIDE
     Dosage: 27.5 MILLIGRAM, 2X/DAY (BID)
     Route: 048
     Dates: start: 20230801, end: 20230804
  4. VIMPAT [Suspect]
     Active Substance: LACOSAMIDE
     Dosage: 35 MILLIGRAM, 2X/DAY (BID)
     Route: 048
     Dates: start: 20230804, end: 20230809
  5. VIMPAT [Suspect]
     Active Substance: LACOSAMIDE
     Dosage: 42.5 MILLIGRAM, 2X/DAY (BID)
     Route: 048
     Dates: start: 20230809, end: 20230817
  6. LEVETIRACETAM [Concomitant]
     Active Substance: LEVETIRACETAM
     Indication: Generalised tonic-clonic seizure
     Dosage: 650 MILLIGRAM, DAILY
     Route: 048
     Dates: start: 20230817
  7. MYSTAN [Concomitant]
     Active Substance: CLOBAZAM
     Indication: Generalised tonic-clonic seizure
     Dosage: 9 MILLIGRAM, DAILY
     Route: 048
     Dates: start: 20230817
  8. PHENYTOIN [Concomitant]
     Active Substance: PHENYTOIN
     Indication: Generalised tonic-clonic seizure
     Dosage: 80 MILLIGRAM, ONCE DAILY (QD)
     Route: 048
     Dates: start: 20230817
  9. LEVOCARNITINE [Concomitant]
     Active Substance: LEVOCARNITINE
     Indication: Product used for unknown indication
     Dosage: 15 MILLILITER, ONCE DAILY (QD)
     Route: 048
     Dates: start: 20230817
  10. ERYTHROMYCIN [Concomitant]
     Active Substance: ERYTHROMYCIN
     Indication: Product used for unknown indication
     Dosage: 100 MILLIGRAM, ONCE DAILY (QD)
     Route: 048
     Dates: start: 20230817
  11. MIYA-BM [Concomitant]
     Active Substance: CLOSTRIDIUM BUTYRICUM SPORES STRAIN M-55
     Indication: Product used for unknown indication
     Dosage: 2 GRAM, ONCE DAILY (QD)
     Route: 048
     Dates: start: 20230817
  12. CARBOCYSTEINE [Concomitant]
     Active Substance: CARBOCYSTEINE
     Indication: Product used for unknown indication
     Dosage: 7 MILLILITER, ONCE DAILY (QD)
     Route: 048
     Dates: start: 20230817
  13. AMBROXOL HYDROCHLORIDE [Concomitant]
     Active Substance: AMBROXOL HYDROCHLORIDE
     Indication: Product used for unknown indication
     Dosage: 1.6 MILLILITER, ONCE DAILY (QD)
     Route: 048
     Dates: start: 20230817
  14. TOPIRAMATE [Concomitant]
     Active Substance: TOPIRAMATE
     Indication: Generalised tonic-clonic seizure
     Dosage: 25 MILLIGRAM, ONCE DAILY (QD)
     Route: 048
     Dates: start: 20230728, end: 20230817
  15. TOPIRAMATE [Concomitant]
     Active Substance: TOPIRAMATE
     Dosage: 40 MILLIGRAM, ONCE DAILY (QD)
     Route: 048
     Dates: start: 20230817
  16. FYCOMPA [Concomitant]
     Active Substance: PERAMPANEL
     Indication: Generalised tonic-clonic seizure
     Dosage: 8 MILLIGRAM, ONCE DAILY (QD)
     Route: 048
     Dates: start: 20230726, end: 20230817
  17. VALPROATE SODIUM [Concomitant]
     Active Substance: VALPROATE SODIUM
     Indication: Generalised tonic-clonic seizure
     Dosage: 400 MILLIGRAM, ONCE DAILY (QD)
     Route: 048
     Dates: start: 20230726, end: 20230817

REACTIONS (5)
  - Cardiac arrest [Fatal]
  - Bronchial secretion retention [Fatal]
  - Obstructive airways disorder [Fatal]
  - Epilepsy [Fatal]
  - Pallor [Unknown]

NARRATIVE: CASE EVENT DATE: 20230817
